FAERS Safety Report 4763321-9 (Version None)
Quarter: 2005Q3

REPORT INFORMATION
  Report Type: 
  Country: None (occurrence: None)
  Receive Date: 20050826
  Receipt Date: 20050404
  Transmission Date: 20060218
  Serious: Yes (Other)
  Sender: FDA-Public Use
  Company Number: USA-2003-0012151

PATIENT
  Age: 54 Year
  Sex: Male
  Weight: 78.5 kg

DRUGS (27)
  1. OXYCONTIN [Suspect]
     Indication: PAIN
     Dosage: 40 MG, TID
  2. INSULIN [Concomitant]
  3. HYDROCHLOROTHIAZIDE [Concomitant]
  4. NORVASC [Concomitant]
  5. MONOPRIL [Concomitant]
  6. CARDURA [Concomitant]
  7. ZYRTEC [Concomitant]
  8. COLESTYRAMINE [Concomitant]
  9. PERI-COLACE [Concomitant]
  10. AMBIEN [Concomitant]
  11. VALIUM [Concomitant]
  12. PERCOCET [Concomitant]
  13. FLONASE [Concomitant]
  14. COMBIVENT [Concomitant]
  15. ZOLOFT [Concomitant]
  16. ASPIRIN [Concomitant]
  17. ZANTAC [Concomitant]
  18. ALBUTEROL [Concomitant]
  19. ATROVENT [Concomitant]
  20. PRILOSEC [Concomitant]
  21. LASIX [Concomitant]
  22. POTASSIUM CHLORIDE [Concomitant]
  23. PROZAC [Concomitant]
  24. RITALIN [Concomitant]
  25. REGLAN [Concomitant]
  26. NOVOLIN 70/30 [Concomitant]
  27. WELLBUTRIN [Concomitant]

REACTIONS (17)
  - ABDOMINAL PAIN UPPER [None]
  - ANOREXIA [None]
  - ANXIETY [None]
  - CHEST DISCOMFORT [None]
  - CHILLS [None]
  - DEPRESSION [None]
  - DRUG DEPENDENCE [None]
  - DRUG WITHDRAWAL SYNDROME [None]
  - INADEQUATE ANALGESIA [None]
  - MOOD ALTERED [None]
  - NAIL BED TENDERNESS [None]
  - NAUSEA [None]
  - PAIN [None]
  - PAIN IN EXTREMITY [None]
  - POLLAKIURIA [None]
  - TOE DEFORMITY [None]
  - WEIGHT DECREASED [None]
